FAERS Safety Report 4995661-2 (Version None)
Quarter: 2006Q2

REPORT INFORMATION
  Report Type: 
  Country: None (occurrence: None)
  Receive Date: 20060504
  Receipt Date: 20060425
  Transmission Date: 20061013
  Serious: Yes (Hospitalization, Other)
  Sender: FDA-Public Use
  Company Number: 2005065616

PATIENT
  Sex: Male
  Weight: 117.9352 kg

DRUGS (2)
  1. DILANTIN KAPSEAL [Suspect]
     Indication: CONVULSION
     Dosage: 900 MG (1 D), ORAL
     Route: 048
  2. PHENYTOIN SODIUM [Suspect]
     Indication: CONVULSION
     Dosage: 600 MG (1D), ORAL
     Route: 048
     Dates: start: 20020101, end: 20040101

REACTIONS (13)
  - ANTICONVULSANT DRUG LEVEL DECREASED [None]
  - ANTICONVULSANT DRUG LEVEL INCREASED [None]
  - BALANCE DISORDER [None]
  - CONVULSION [None]
  - DIZZINESS [None]
  - DRUG EFFECT DECREASED [None]
  - DRUG TOXICITY [None]
  - DYSSTASIA [None]
  - MALAISE [None]
  - PAROXYSMAL PERCEPTUAL ALTERATION [None]
  - PHARMACEUTICAL PRODUCT COMPLAINT [None]
  - THERAPY NON-RESPONDER [None]
  - VERTIGO [None]
